FAERS Safety Report 9958205 (Version 1)
Quarter: 2014Q1

REPORT INFORMATION
  Report Type: Report from Study
  Country: US (occurrence: US)
  Receive Date: 20140304
  Receipt Date: 20140304
  Transmission Date: 20141002
  Serious: No
  Sender: FDA-Public Use
  Company Number: US-ABBVIE-13P-163-1095134-00

PATIENT
  Age: 39 Year
  Sex: Male
  Weight: 87.62 kg

DRUGS (5)
  1. HUMIRA [Suspect]
     Indication: COLITIS ULCERATIVE
     Dates: start: 201211, end: 201302
  2. HUMIRA [Suspect]
     Dates: start: 201302, end: 20130427
  3. ADVAIR [Concomitant]
     Indication: ASTHMA
  4. FLONASE [Concomitant]
     Indication: HYPERSENSITIVITY
  5. 6-MP [Concomitant]
     Indication: COLITIS ULCERATIVE

REACTIONS (1)
  - Drug ineffective [Not Recovered/Not Resolved]
